FAERS Safety Report 8395488-8 (Version None)
Quarter: 2012Q2

REPORT INFORMATION
  Report Type: 
  Country: None (occurrence: None)
  Receive Date: 20120530
  Receipt Date: 20110422
  Transmission Date: 20120825
  Serious: No
  Sender: FDA-Public Use
  Company Number: US-GLAXOSMITHKLINE-A0924231A

PATIENT
  Sex: Male

DRUGS (5)
  1. LOTREL [Concomitant]
  2. METOPROLOL TARTRATE [Concomitant]
  3. VENTOLIN [Suspect]
     Indication: ASTHMA
     Route: 055
  4. DOXAZOSIN MESYLATE [Concomitant]
  5. CRESTOR [Concomitant]

REACTIONS (7)
  - OVERDOSE [None]
  - CARDIAC DISORDER [None]
  - DRUG EFFECT DECREASED [None]
  - OEDEMA [None]
  - PULMONARY FUNCTION TEST DECREASED [None]
  - DRUG ADMINISTRATION ERROR [None]
  - PRODUCT QUALITY ISSUE [None]
